FAERS Safety Report 9476432 (Version 4)
Quarter: 2014Q2

REPORT INFORMATION
  Report Type: Report from Study
  Country: BG (occurrence: BG)
  Receive Date: 20130826
  Receipt Date: 20140606
  Transmission Date: 20141212
  Serious: Yes (Hospitalization)
  Sender: FDA-Public Use
  Company Number: BG-009507513-1207BGR002900

PATIENT
  Age: 47 Year
  Sex: Female
  Weight: 64 kg

DRUGS (9)
  1. BLINDED VARICELLA-ZOSTER VIRUS VACCINE INACTIVATED (OKA/MERCK) [Suspect]
     Indication: PROPHYLAXIS
     Route: 058
     Dates: start: 20120629, end: 20120629
  2. BLINDED VARICELLA-ZOSTER VIRUS VACCINE INACTIVATED (OKA/MERCK) [Suspect]
     Route: 058
     Dates: start: 20120412, end: 20120412
  3. BLINDED VARICELLA-ZOSTER VIRUS VACCINE INACTIVATED (OKA/MERCK) [Suspect]
     Route: 058
     Dates: start: 20120516, end: 20120516
  4. BLINDED VARICELLA-ZOSTER VIRUS VACCINE INACTIVATED (OKA/MERCK) [Suspect]
     Route: 058
     Dates: start: 20120606, end: 20120606
  5. PACLITAXEL [Suspect]
     Indication: CHEMOTHERAPY
     Dosage: UNK, Q3W
     Route: 042
     Dates: start: 20120611, end: 20120611
  6. PACLITAXEL [Suspect]
     Dosage: 300 MG, Q3W
     Route: 042
     Dates: start: 20120705, end: 20120705
  7. METHYLPREDNISOLONE SODIUM SUCCINATE [Concomitant]
     Indication: HYPERSENSITIVITY
     Dosage: TOTAL DAILY DOSE 80 (2 AMP X 40 MG)
     Route: 042
     Dates: start: 20120705, end: 20120705
  8. CYCLOPHOSPHAMIDE (+) EPIRUBICIN HYDROCHLORIDE [Concomitant]
     Dosage: UNK, Q3W
     Dates: start: 20120217
  9. CYCLOPHOSPHAMIDE (+) EPIRUBICIN HYDROCHLORIDE [Concomitant]
     Dosage: UNK, Q3W
     Dates: start: 20120704, end: 20120704

REACTIONS (1)
  - Drug hypersensitivity [Recovered/Resolved]
